FAERS Safety Report 5858609-4 (Version None)
Quarter: 2008Q3

REPORT INFORMATION
  Report Type: 
  Country: None (occurrence: None)
  Receive Date: 20080826
  Receipt Date: 20080813
  Transmission Date: 20090109
  Serious: Yes (Hospitalization, Other)
  Sender: FDA-Public Use
  Company Number: US-ELI_LILLY_AND_COMPANY-US200806003199

PATIENT
  Age: 33 Year
  Sex: Male

DRUGS (3)
  1. CYMBALTA [Suspect]
     Indication: MAJOR DEPRESSION
     Dosage: UNK, UNK
     Dates: start: 20080604
  2. LAMICTAL [Concomitant]
     Dosage: 50 MG, UNK
     Dates: start: 20080604, end: 20080101
  3. TRAZODONE HCL [Concomitant]
     Dosage: UNK, UNK
     Dates: start: 20080604

REACTIONS (12)
  - ABNORMAL BEHAVIOUR [None]
  - AGGRESSION [None]
  - AMNESIA [None]
  - ANXIETY [None]
  - BLOOD CREATININE ABNORMAL [None]
  - BLOOD UREA INCREASED [None]
  - CAROTID ARTERY ANEURYSM [None]
  - CEREBRAL HAEMORRHAGE [None]
  - CONFUSIONAL STATE [None]
  - CRYING [None]
  - HEADACHE [None]
  - WEIGHT DECREASED [None]
